FAERS Safety Report 16051301 (Version 1)
Quarter: 2019Q2

REPORT INFORMATION
  Report Type: Spontaneous
  Country: US (occurrence: US)
  Receive Date: 20190307
  Receipt Date: 20190307
  Transmission Date: 20190711
  Serious: Yes (Life-Threatening, Hospitalization, Other)
  Sender: FDA-Public Use
  Company Number: None

PATIENT
  Age: 39 Year
  Sex: Female
  Weight: 69.75 kg

DRUGS (1)
  1. HALDOL [Suspect]
     Active Substance: HALOPERIDOL
     Indication: PSYCHOTIC DISORDER
     Route: 048
     Dates: start: 20130930, end: 20131009

REACTIONS (4)
  - Maternal exposure during pregnancy [None]
  - Speech disorder [None]
  - Foetal exposure during pregnancy [None]
  - Jaw disorder [None]

NARRATIVE: CASE EVENT DATE: 20131005
